FAERS Safety Report 8344030-6 (Version None)
Quarter: 2012Q2

REPORT INFORMATION
  Report Type: 
  Country: None (occurrence: None)
  Receive Date: 20120504
  Receipt Date: 20120419
  Transmission Date: 20120825
  Serious: Yes (Hospitalization, Other)
  Sender: FDA-Public Use
  Company Number: 2011SGN00001

PATIENT
  Age: 21 Year
  Sex: Female
  Weight: 37.2 kg

DRUGS (7)
  1. SINGULAIR (MONTILUKAST SODIUM) [Concomitant]
  2. VENTOLIN (BECLOMETASONE DIPROPIONATE, SALBUTAMOL) [Concomitant]
  3. VICOPROFEN [Concomitant]
  4. ACYCLOVIR [Concomitant]
  5. SGN-35 (CAC10-VCMMAE) INJECTION [Suspect]
     Indication: HODGKIN'S DISEASE
     Dosage: 1.8 MG/KG, Q21D, INTRAVENOUS
     Route: 042
     Dates: start: 20100208, end: 20101227
  6. MEGACE [Concomitant]
  7. ZYRTEC [Concomitant]

REACTIONS (10)
  - ALANINE AMINOTRANSFERASE INCREASED [None]
  - PULMONARY HAEMORRHAGE [None]
  - HAEMATEMESIS [None]
  - ABDOMINAL PAIN [None]
  - NAUSEA [None]
  - ASPARTATE AMINOTRANSFERASE INCREASED [None]
  - PNEUMOCYSTIS JIROVECI PNEUMONIA [None]
  - PNEUMONITIS [None]
  - VOMITING [None]
  - NEUTROPENIA [None]
